FAERS Safety Report 9378986 (Version 1)
Quarter: 2013Q2

REPORT INFORMATION
  Report Type: Spontaneous
  Country: US (occurrence: None)
  Receive Date: 20130626
  Receipt Date: 20130626
  Transmission Date: 20140414
  Serious: Yes (Hospitalization)
  Sender: FDA-Public Use
  Company Number: CIO130033458

PATIENT
  Sex: Female

DRUGS (1)
  1. ZZZQUIL NIGHTTIME SLEEP-AID [Suspect]
     Indication: INSOMNIA
     Dosage: 2 TBSP.
     Route: 048
     Dates: start: 20130609, end: 20130609

REACTIONS (5)
  - Asthenia [None]
  - Dizziness [None]
  - Visual impairment [None]
  - Hyperhidrosis [None]
  - Insomnia [None]
